FAERS Safety Report 18871433 (Version 2)
Quarter: 2021Q1

REPORT INFORMATION
  Report Type: Spontaneous
  Country: JP (occurrence: JP)
  Receive Date: 20210210
  Receipt Date: 20210318
  Transmission Date: 20210420
  Serious: Yes (Other)
  Sender: FDA-Public Use
  Company Number: NVSJ2020JP011238

PATIENT
  Age: 78 Year
  Sex: Male

DRUGS (1)
  1. BEOVU [Suspect]
     Active Substance: BROLUCIZUMAB-DBLL
     Indication: AGE-RELATED MACULAR DEGENERATION
     Dosage: 6 MG
     Route: 031
     Dates: start: 20200629, end: 20200629

REACTIONS (18)
  - Visual impairment [Not Recovered/Not Resolved]
  - Retinal haemorrhage [Recovering/Resolving]
  - Glaucoma [Unknown]
  - Vitreous opacities [Recovering/Resolving]
  - Visual field defect [Not Recovered/Not Resolved]
  - Vitritis [Recovered/Resolved]
  - Vitreous floaters [Recovered/Resolved]
  - Vitreous opacities [Recovered/Resolved]
  - Retinal artery occlusion [Recovered/Resolved with Sequelae]
  - Retinal vein occlusion [Recovered/Resolved]
  - Eye inflammation [Unknown]
  - Retinal vasculitis [Recovering/Resolving]
  - Concomitant disease aggravated [Recovering/Resolving]
  - Visual field defect [Unknown]
  - Retinal perivascular sheathing [Unknown]
  - Vitritis [Unknown]
  - Blindness transient [Recovering/Resolving]
  - Vision blurred [Recovered/Resolved]

NARRATIVE: CASE EVENT DATE: 20200707
